FAERS Safety Report 13188912 (Version 1)
Quarter: 2017Q1

REPORT INFORMATION
  Report Type: Spontaneous
  Country: US (occurrence: US)
  Receive Date: 20170203
  Receipt Date: 20170203
  Transmission Date: 20170428
  Serious: No
  Sender: FDA-Public Use
  Company Number: None

PATIENT
  Age: 58 Year
  Sex: Female

DRUGS (6)
  1. GLEEVEC [Suspect]
     Active Substance: IMATINIB MESYLATE
     Indication: NAUSEA
  2. GLEEVEC [Suspect]
     Active Substance: IMATINIB MESYLATE
     Indication: ESSENTIAL HYPERTENSION
  3. GLEEVEC [Suspect]
     Active Substance: IMATINIB MESYLATE
     Indication: NEOPLASM MALIGNANT
  4. GLEEVEC [Suspect]
     Active Substance: IMATINIB MESYLATE
     Indication: ANAEMIA
  5. GLEEVEC [Suspect]
     Active Substance: IMATINIB MESYLATE
     Indication: ANAEMIA OF CHRONIC DISEASE
  6. GLEEVEC [Suspect]
     Active Substance: IMATINIB MESYLATE
     Indication: TYPE 2 DIABETES MELLITUS

REACTIONS (1)
  - Nausea [None]

NARRATIVE: CASE EVENT DATE: 20170203
